FAERS Safety Report 6828464-4 (Version None)
Quarter: 2010Q3

REPORT INFORMATION
  Report Type: 
  Country: None (occurrence: None)
  Receive Date: 20100709
  Receipt Date: 20070405
  Transmission Date: 20110219
  Serious: No
  Sender: FDA-Public Use
  Company Number: US-PFIZER INC-2007011538

PATIENT
  Sex: Male
  Weight: 104.33 kg

DRUGS (18)
  1. CHANTIX [Suspect]
     Indication: SMOKING CESSATION THERAPY
     Dates: start: 20061101, end: 20070205
  2. HYDROCODONE BITARTRATE [Concomitant]
  3. OXYCODONE HCL [Concomitant]
  4. MEPERIDINE HCL [Concomitant]
  5. EFFEXOR [Concomitant]
     Indication: DEPRESSION
  6. CLONAZEPAM [Concomitant]
  7. MELOXICAM [Concomitant]
  8. DIAZEPAM [Concomitant]
  9. VITAPLEX [Concomitant]
  10. ADVAIR DISKUS 100/50 [Concomitant]
  11. SPIRIVA [Concomitant]
  12. IBUPROFEN [Concomitant]
  13. POLYETHYLENE GLYCOL [Concomitant]
  14. ANTIEMETICS AND ANTINAUSEANTS [Concomitant]
  15. ACETYLSALICYLIC ACID [Concomitant]
  16. THERAGRAN-M [Concomitant]
  17. MILK OF MAGNESIA TAB [Concomitant]
  18. OTHER ANTIDIARRHOEALS [Concomitant]

REACTIONS (8)
  - ABDOMINAL PAIN UPPER [None]
  - DRUG INEFFECTIVE [None]
  - DYSGEUSIA [None]
  - GASTRIC DISORDER [None]
  - INSOMNIA [None]
  - NERVOUSNESS [None]
  - POLYP [None]
  - TOBACCO USER [None]
